FAERS Safety Report 7863121-7 (Version None)
Quarter: 2011Q4

REPORT INFORMATION
  Report Type: 
  Country: None (occurrence: None)
  Receive Date: 20111027
  Receipt Date: 20101129
  Transmission Date: 20120403
  Serious: No
  Sender: FDA-Public Use
  Company Number: US-AMGEN-USASP2010006802

PATIENT
  Age: 47 Year
  Sex: Male

DRUGS (1)
  1. ENBREL [Suspect]
     Indication: RHEUMATOID ARTHRITIS
     Dates: start: 20101118

REACTIONS (6)
  - PAIN [None]
  - HEADACHE [None]
  - ARTHRALGIA [None]
  - RHEUMATOID ARTHRITIS [None]
  - JOINT SWELLING [None]
  - ERYTHEMA [None]
